FAERS Safety Report 5658779-7 (Version None)
Quarter: 2008Q1

REPORT INFORMATION
  Report Type: 
  Country: None (occurrence: None)
  Receive Date: 20080310
  Receipt Date: 20070417
  Transmission Date: 20080703
  Serious: No
  Sender: FDA-Public Use
  Company Number: US-BAYER-200711157BCC

PATIENT
  Age: 81 Year
  Sex: Female
  Weight: 70 kg

DRUGS (2)
  1. ALEVE [Suspect]
     Indication: SCIATICA
     Dosage: UNIT DOSE: 220 MG
     Route: 048
     Dates: start: 20070417
  2. UNKNOWN MEDICATION FOR CHOLESTEROL [Concomitant]

REACTIONS (1)
  - SCIATICA [None]
